FAERS Safety Report 21746851 (Version 1)
Quarter: 2022Q4

REPORT INFORMATION
  Report Type: Spontaneous
  Country: US (occurrence: None)
  Receive Date: 20221216
  Receipt Date: 20221216
  Transmission Date: 20230113
  Serious: No
  Sender: FDA-Public Use
  Company Number: None

PATIENT
  Age: 82 Year
  Sex: Female
  Weight: 57.15 kg

DRUGS (8)
  1. IBRANCE [Suspect]
     Active Substance: PALBOCICLIB
     Indication: Breast cancer female
     Dosage: 125MG  21D ON 7D OFF ORAL?
     Route: 048
  2. ALENDRONATE [Concomitant]
     Active Substance: ALENDRONATE SODIUM
  3. ALEVE [Concomitant]
     Active Substance: NAPROXEN SODIUM
  4. ANASTROZOLE [Concomitant]
     Active Substance: ANASTROZOLE
  5. CALCIUM [Concomitant]
     Active Substance: CALCIUM
  6. FAMOTIDINE [Concomitant]
     Active Substance: FAMOTIDINE
  7. METFORMIN [Concomitant]
     Active Substance: METFORMIN HYDROCHLORIDE
  8. VITAMIN B12 [Concomitant]
     Active Substance: CYANOCOBALAMIN

REACTIONS (1)
  - Disease progression [None]
